FAERS Safety Report 17624644 (Version 1)
Quarter: 2020Q2

REPORT INFORMATION
  Report Type: Report from Study
  Country: None (occurrence: US)
  Receive Date: 20200403
  Receipt Date: 20200403
  Transmission Date: 20200713
  Serious: No
  Sender: FDA-Public Use
  Company Number: US-BIOVITRUM-2019US4706

PATIENT
  Age: 3 Year
  Sex: Male

DRUGS (1)
  1. ORFADIN [Suspect]
     Active Substance: NITISINONE
     Indication: TYROSINAEMIA
     Dosage: 1.5 ML TWICE DAILY
     Route: 048
     Dates: start: 20161013

REACTIONS (2)
  - Amino acid level increased [Unknown]
  - Deposit eye [Unknown]

NARRATIVE: CASE EVENT DATE: 201910
